FAERS Safety Report 23975251 (Version 1)
Quarter: 2024Q2

REPORT INFORMATION
  Report Type: Other
  Country: NL (occurrence: NL)
  Receive Date: 20240614
  Receipt Date: 20240614
  Transmission Date: 20240716
  Serious: Yes (Other)
  Sender: FDA-Public Use
  Company Number: None

PATIENT

DRUGS (2)
  1. DESLORATADINE [Suspect]
     Active Substance: DESLORATADINE
     Indication: Urticaria chronic
     Dosage: 5 MILLIGRAM, OD, 1X PER DAG 1 STUK, GENEESMIDDEL VOORGESCHREVEN DOOR ARTS: JA
     Route: 065
     Dates: start: 20240301
  2. DESLORATADINE [Suspect]
     Active Substance: DESLORATADINE
     Dosage: UNK
     Route: 065

REACTIONS (6)
  - Mental impairment [Recovering/Resolving]
  - Anxiety [Recovering/Resolving]
  - Anger [Recovering/Resolving]
  - Confusional state [Recovering/Resolving]
  - Depressed mood [Recovering/Resolving]
  - Palpitations [Recovering/Resolving]
